FAERS Safety Report 11000754 (Version 1)
Quarter: 2015Q2

REPORT INFORMATION
  Report Type: Spontaneous
  Country: US (occurrence: US)
  Receive Date: 20150408
  Receipt Date: 20150408
  Transmission Date: 20150821
  Serious: No
  Sender: FDA-Public Use
  Company Number: US-SA-2014SA125131

PATIENT
  Sex: Female

DRUGS (2)
  1. CLARITIN [Concomitant]
     Active Substance: LORATADINE
  2. ALLEGRA [Suspect]
     Active Substance: FEXOFENADINE HYDROCHLORIDE
     Indication: PRURITUS
     Route: 048

REACTIONS (2)
  - Drug prescribing error [Unknown]
  - Off label use [Unknown]
